FAERS Safety Report 14664153 (Version 15)
Quarter: 2022Q3

REPORT INFORMATION
  Report Type: Spontaneous
  Country: GB (occurrence: GB)
  Receive Date: 20180321
  Receipt Date: 20220809
  Transmission Date: 20221027
  Serious: Yes (Other)
  Sender: FDA-Public Use
  Company Number: GB-EMA-DD-20180308-TANEJAEVHP-140606

PATIENT
  Sex: Female
  Weight: 60.1 kg

DRUGS (18)
  1. CITALOPRAM HYDROBROMIDE [Suspect]
     Active Substance: CITALOPRAM HYDROBROMIDE
     Indication: Product used for unknown indication
     Dosage: 30 MG, QD
     Route: 048
  2. AMISULPRIDE [Suspect]
     Active Substance: AMISULPRIDE
     Indication: Product used for unknown indication
     Dosage: 400 MILLIGRAM DAILY; 200 MG, BID
     Route: 048
  3. AMISULPRIDE [Suspect]
     Active Substance: AMISULPRIDE
     Dosage: 400 MG, QD
     Route: 048
  4. AMISULPRIDE [Suspect]
     Active Substance: AMISULPRIDE
     Dosage: 200 MG, BID
     Route: 048
  5. AMISULPRIDE [Suspect]
     Active Substance: AMISULPRIDE
     Dosage: 800 MG, BID
  6. PIRENZEPINE [Suspect]
     Active Substance: PIRENZEPINE
     Indication: Product used for unknown indication
     Dosage: 50 MG, Q12H
     Route: 048
  7. PIRENZEPINE [Suspect]
     Active Substance: PIRENZEPINE
     Dosage: 600 MG, QD
     Route: 048
  8. PIRENZEPINE [Suspect]
     Active Substance: PIRENZEPINE
     Dosage: 50 MG, BID
     Route: 048
  9. PIRENZEPINE [Suspect]
     Active Substance: PIRENZEPINE
     Dosage: 100 MILLIGRAM DAILY; 50 MG, BID
     Route: 048
  10. PIRENZEPINE [Suspect]
     Active Substance: PIRENZEPINE
     Dosage: 200 MG
     Route: 048
  11. VALPROATE SODIUM [Suspect]
     Active Substance: VALPROATE SODIUM
     Indication: Product used for unknown indication
     Dosage: 600 MG, BID
     Route: 048
  12. VALPROATE SODIUM [Suspect]
     Active Substance: VALPROATE SODIUM
     Dosage: 600 MG, QD
     Route: 048
  13. CLOZARIL [Suspect]
     Active Substance: CLOZAPINE
     Indication: Schizophrenia
     Dosage: 200 MG, BID
     Route: 048
  14. CLOZARIL [Suspect]
     Active Substance: CLOZAPINE
     Dosage: 400 MG, QD
     Route: 048
     Dates: start: 20030116
  15. LORAZEPAM [Suspect]
     Active Substance: LORAZEPAM
     Indication: Product used for unknown indication
     Dosage: 50 MG, Q12H
     Route: 048
  16. LORAZEPAM [Suspect]
     Active Substance: LORAZEPAM
     Dosage: 1 MG, PRN
     Route: 048
  17. CLONAZEPAM [Suspect]
     Active Substance: CLONAZEPAM
     Indication: Schizophrenia
     Dosage: 400 MG, QD
     Route: 048
     Dates: start: 20030116
  18. CLONAZEPAM [Suspect]
     Active Substance: CLONAZEPAM
     Dosage: 200 MG, BID
     Route: 048
     Dates: start: 20030116

REACTIONS (2)
  - Differential white blood cell count abnormal [Recovering/Resolving]
  - Neutrophil count abnormal [Recovering/Resolving]

NARRATIVE: CASE EVENT DATE: 20170118
